FAERS Safety Report 25131267 (Version 1)
Quarter: 2025Q1

REPORT INFORMATION
  Report Type: Report from Study
  Country: IE (occurrence: IE)
  Receive Date: 20250327
  Receipt Date: 20250327
  Transmission Date: 20250408
  Serious: Yes (Death, Other)
  Sender: TAKEDA
  Company Number: IE-TAKEDA-2024TUS091902

PATIENT
  Age: 79 Year
  Sex: Male

DRUGS (21)
  1. HUMAN IMMUNOGLOBULIN G\HYALURONIDASE RECOMBINANT HUMAN [Suspect]
     Active Substance: HUMAN IMMUNOGLOBULIN G\HYALURONIDASE (HUMAN RECOMBINANT)
     Indication: Plasma cell myeloma
  2. HUMAN IMMUNOGLOBULIN G\HYALURONIDASE RECOMBINANT HUMAN [Suspect]
     Active Substance: HUMAN IMMUNOGLOBULIN G\HYALURONIDASE (HUMAN RECOMBINANT)
     Dosage: 30 MILLIGRAM, Q4WEEKS
  3. HUMAN IMMUNOGLOBULIN G\HYALURONIDASE RECOMBINANT HUMAN [Suspect]
     Active Substance: HUMAN IMMUNOGLOBULIN G\HYALURONIDASE (HUMAN RECOMBINANT)
     Dosage: 30 GRAM, Q4WEEKS
  4. NAFRONYL [Concomitant]
     Active Substance: NAFRONYL
     Dosage: 100 MILLIGRAM, TID
  5. ROSUVASTATIN [Concomitant]
     Active Substance: ROSUVASTATIN
     Dosage: 10 MILLIGRAM, QD
  6. Seropia [Concomitant]
     Dosage: 12.5 MILLIGRAM, QD
  7. LYRICA [Concomitant]
     Active Substance: PREGABALIN
     Dosage: 50 MILLIGRAM, QD
  8. FUROSEMIDE [Concomitant]
     Active Substance: FUROSEMIDE
     Dosage: 40 MILLIGRAM, QD
  9. FUROSEMIDE [Concomitant]
     Active Substance: FUROSEMIDE
     Dosage: 20 MILLIGRAM, QD
  10. FUROSEMIDE [Concomitant]
     Active Substance: FUROSEMIDE
     Dosage: 40 MILLIGRAM, QD
  11. ELIQUIS [Concomitant]
     Active Substance: APIXABAN
     Dosage: 5 MILLIGRAM, BID
  12. BISOPROLOL [Concomitant]
     Active Substance: BISOPROLOL
     Dosage: 2.5 MILLIGRAM, QD
  13. EPOETIN BETA [Concomitant]
     Active Substance: ERYTHROPOIETIN
  14. EPOETIN BETA [Concomitant]
     Active Substance: ERYTHROPOIETIN
  15. PREGABALIN [Concomitant]
     Active Substance: PREGABALIN
     Dosage: 100 MILLIGRAM, QD
  16. QUETIAPINE [Concomitant]
     Active Substance: QUETIAPINE
     Dosage: 25 MILLIGRAM, QD
  17. VALTREX [Concomitant]
     Active Substance: VALACYCLOVIR HYDROCHLORIDE
     Dosage: 500 MILLIGRAM, BID
  18. ATORVASTATIN [Concomitant]
     Active Substance: ATORVASTATIN
     Dosage: UNK UNK, QD
  19. ZOPICLONE [Concomitant]
     Active Substance: ZOPICLONE
     Dosage: 7.5 MILLIGRAM, QD
  20. APIXABAN [Concomitant]
     Active Substance: APIXABAN
     Dosage: 5 MILLIGRAM, BID
  21. PANTOPRAZOLE [Concomitant]
     Active Substance: PANTOPRAZOLE

REACTIONS (3)
  - Death [Fatal]
  - Weight decreased [Not Recovered/Not Resolved]
  - Product use in unapproved indication [Unknown]

NARRATIVE: CASE EVENT DATE: 20240911
